FAERS Safety Report 8607112 (Version 3)
Quarter: 2014Q2

REPORT INFORMATION
  Report Type: Spontaneous
  Country: US (occurrence: US)
  Receive Date: 20120611
  Receipt Date: 20140422
  Transmission Date: 20141212
  Serious: Yes (Hospitalization, Disabling, Other)
  Sender: FDA-Public Use
  Company Number: US-ASTRAZENECA-2012SE34772

PATIENT
  Age: 20986 Day
  Sex: Female

DRUGS (13)
  1. NEXIUM [Suspect]
     Indication: GASTROOESOPHAGEAL REFLUX DISEASE
     Route: 048
  2. NEXIUM [Suspect]
     Indication: GASTROOESOPHAGEAL REFLUX DISEASE
     Route: 048
     Dates: start: 20031007
  3. NEXIUM [Suspect]
     Indication: GASTROOESOPHAGEAL REFLUX DISEASE
     Route: 048
     Dates: start: 20040917
  4. PREVACID [Concomitant]
     Indication: GASTROOESOPHAGEAL REFLUX DISEASE
  5. PREVACID [Concomitant]
     Indication: GASTROOESOPHAGEAL REFLUX DISEASE
     Dates: start: 20020329
  6. TUMS [Concomitant]
  7. PEPTO BISMOL [Concomitant]
  8. FUROSEMIDE [Concomitant]
     Indication: BLOOD PRESSURE ABNORMAL
  9. TOPROL [Concomitant]
     Indication: BLOOD PRESSURE ABNORMAL
  10. AMLODIPINE BESILATE [Concomitant]
     Indication: BLOOD PRESSURE ABNORMAL
  11. ASPIRIN [Concomitant]
  12. ACIPHEX [Concomitant]
     Indication: GASTROOESOPHAGEAL REFLUX DISEASE
  13. OMEGA 3 FATTY ACIDS [Concomitant]

REACTIONS (10)
  - Ankle fracture [Unknown]
  - Joint injury [Unknown]
  - Deep vein thrombosis [Unknown]
  - Carpal tunnel syndrome [Unknown]
  - Gallbladder disorder [Unknown]
  - Renal artery occlusion [Unknown]
  - Thrombosis [Unknown]
  - Osteoporosis [Unknown]
  - Spondylitis [Unknown]
  - Dizziness [Unknown]
